FAERS Safety Report 20810749 (Version 1)
Quarter: 2022Q2

REPORT INFORMATION
  Report Type: Spontaneous
  Country: RO (occurrence: None)
  Receive Date: 20220510
  Receipt Date: 20220510
  Transmission Date: 20220721
  Serious: Yes (Other)
  Sender: FDA-Public Use
  Company Number: RO-AMGEN-ROUSP2022070033

PATIENT
  Age: 67 Year
  Sex: Male

DRUGS (7)
  1. LEUCOVORIN CALCIUM [Suspect]
     Active Substance: LEUCOVORIN CALCIUM
     Indication: Colorectal cancer metastatic
     Dosage: UNK
     Route: 065
     Dates: start: 20210405
  2. OXALIPLATIN [Suspect]
     Active Substance: OXALIPLATIN
     Indication: Colorectal cancer metastatic
     Dosage: UNK
     Route: 065
     Dates: start: 20210405, end: 2021
  3. PANITUMUMAB [Suspect]
     Active Substance: PANITUMUMAB
     Indication: Colorectal cancer metastatic
     Dosage: UNK UNK, Q2WK
     Route: 042
     Dates: start: 202105
  4. PANITUMUMAB [Suspect]
     Active Substance: PANITUMUMAB
     Indication: Product used for unknown indication
     Dosage: UNK UNK, Q2WK (REDUCED TO 80PERCENT)
     Route: 042
     Dates: start: 202111
  5. BEVACIZUMAB [Suspect]
     Active Substance: BEVACIZUMAB
     Indication: Colorectal cancer metastatic
     Dosage: UNK
     Route: 065
     Dates: start: 20210405, end: 2021
  6. FLUOROURACIL [Suspect]
     Active Substance: FLUOROURACIL
     Indication: Colorectal cancer metastatic
     Dosage: UNK
     Route: 065
     Dates: start: 20210405
  7. CAPECITABINE [Concomitant]
     Active Substance: CAPECITABINE
     Indication: Colorectal cancer
     Dosage: UNK, 2 SERIES: DAY1-D14, DAY 1- DAY 7
     Route: 065
     Dates: start: 202111

REACTIONS (20)
  - Hypocalcaemia [Unknown]
  - Phimosis [Unknown]
  - Balanoposthitis [Unknown]
  - Lung disorder [Unknown]
  - Angina pectoris [Unknown]
  - Hypomagnesaemia [Unknown]
  - Polyneuropathy [Unknown]
  - COVID-19 [Unknown]
  - Skin toxicity [Unknown]
  - Impetigo [Unknown]
  - Paronychia [Unknown]
  - Skin fissures [Unknown]
  - Sepsis [Unknown]
  - Neuropathy peripheral [Unknown]
  - Skin haemorrhage [Unknown]
  - Hypokalaemia [Unknown]
  - Eczema impetiginous [Unknown]
  - Onycholysis [Unknown]
  - Deep vein thrombosis [Unknown]
  - Mucosal toxicity [Unknown]

NARRATIVE: CASE EVENT DATE: 20210501
